FAERS Safety Report 4490492-4 (Version None)
Quarter: 2004Q4

REPORT INFORMATION
  Report Type: 
  Country: None (occurrence: None)
  Receive Date: 20041027
  Receipt Date: 20041019
  Transmission Date: 20050328
  Serious: Yes (Life-Threatening, Hospitalization, Other)
  Sender: FDA-Public Use
  Company Number: 2004-10-0029

PATIENT
  Age: 30 Year
  Sex: Female
  Weight: 59 kg

DRUGS (3)
  1. TEMODAL [Suspect]
     Indication: MALIGNANT MELANOMA
     Dosage: 300 MG QD X5D ORAL
     Route: 048
     Dates: start: 20040910, end: 20040914
  2. TEMODAL [Suspect]
     Indication: NEOPLASM RECURRENCE
     Dosage: 300 MG QD X5D ORAL
     Route: 048
     Dates: start: 20040910, end: 20040914
  3. GRANISETRON [Concomitant]

REACTIONS (5)
  - FEBRILE NEUTROPENIA [None]
  - GINGIVAL BLEEDING [None]
  - METASTASES TO BONE MARROW [None]
  - THROMBOCYTOPENIA [None]
  - WHITE BLOOD CELL COUNT DECREASED [None]
